FAERS Safety Report 8165564 (Version 2)
Quarter: 2013Q4

REPORT INFORMATION
  Report Type: Spontaneous
  Country: FR (occurrence: FR)
  Receive Date: 20111003
  Receipt Date: 20131017
  Transmission Date: 20140711
  Serious: Yes (Hospitalization, Other)
  Sender: FDA-Public Use
  Company Number: FR-PFIZER INC-2011229235

PATIENT
  Age: 38 Year
  Sex: Male

DRUGS (6)
  1. VFEND [Suspect]
     Dosage: 200 MG, 2X/DAY
     Route: 048
     Dates: start: 20061016, end: 201105
  2. PROGRAF [Concomitant]
     Dosage: UNK
     Dates: start: 20050905
  3. CELLCEPT [Concomitant]
     Indication: GRAFT VERSUS HOST DISEASE
     Dosage: UNK
     Dates: start: 20050531
  4. CREON [Concomitant]
     Indication: PANCREATIC INSUFFICIENCY
  5. LEVOTHYROX [Concomitant]
  6. CORTANCYL [Concomitant]

REACTIONS (1)
  - Squamous cell carcinoma [Recovered/Resolved with Sequelae]
